FAERS Safety Report 23205792 (Version 1)
Quarter: 2023Q4

REPORT INFORMATION
  Report Type: Spontaneous
  Country: US (occurrence: None)
  Receive Date: 20231120
  Receipt Date: 20231120
  Transmission Date: 20240109
  Serious: Yes (Hospitalization, Other)
  Sender: FDA-Public Use
  Company Number: US-Unichem Pharmaceuticals (USA) Inc-UCM202311-001426

PATIENT
  Age: 51 Year
  Sex: Female

DRUGS (1)
  1. LOSARTAN [Suspect]
     Active Substance: LOSARTAN
     Indication: Cardiac failure
     Dosage: UNKNOWN

REACTIONS (3)
  - Hypoglycaemia [Recovered/Resolved]
  - Acute respiratory failure [Unknown]
  - Somnolence [Unknown]
